FAERS Safety Report 5352178-3 (Version None)
Quarter: 2007Q2

REPORT INFORMATION
  Report Type: 
  Country: None (occurrence: None)
  Receive Date: 20070611
  Receipt Date: 20070531
  Transmission Date: 20071010
  Serious: Yes (Hospitalization, Other)
  Sender: FDA-Public Use
  Company Number: HQWYE470701JUN07

PATIENT
  Sex: Male
  Weight: 80 kg

DRUGS (1)
  1. SIROLIMUS [Suspect]
     Indication: PROPHYLAXIS AGAINST TRANSPLANT REJECTION
     Dosage: 2 MG; FREQUENCY NOT SPECIFIED
     Route: 048
     Dates: start: 20060126

REACTIONS (1)
  - CONVULSION [None]
